FAERS Safety Report 14534323 (Version 1)
Quarter: 2018Q1

REPORT INFORMATION
  Report Type: Spontaneous
  Country: US (occurrence: US)
  Receive Date: 20180214
  Receipt Date: 20180214
  Transmission Date: 20180509
  Serious: Yes (Hospitalization)
  Sender: FDA-Public Use
  Company Number: None

PATIENT
  Age: 73 Year
  Sex: Male

DRUGS (2)
  1. CAPECITABINE  500MG WEST-WARD PHARMACEUTICAL [Suspect]
     Active Substance: CAPECITABINE
     Indication: SKIN CANCER
     Dosage: BID 2 WEEKS ON  1 WEEK OFF
     Route: 048
     Dates: start: 20180111, end: 20180211
  2. CAPECITABINE  500MG WEST-WARD PHARMACEUTICAL [Suspect]
     Active Substance: CAPECITABINE
     Indication: PANCREATIC CARCINOMA
     Dosage: BID 2 WEEKS ON  1 WEEK OFF
     Route: 048
     Dates: start: 20180111, end: 20180211

REACTIONS (2)
  - Therapy cessation [None]
  - Myocardial infarction [None]

NARRATIVE: CASE EVENT DATE: 20180212
